FAERS Safety Report 8288773-1 (Version None)
Quarter: 2012Q2

REPORT INFORMATION
  Report Type: 
  Country: None (occurrence: None)
  Receive Date: 20120417
  Receipt Date: 20120406
  Transmission Date: 20120825
  Serious: No
  Sender: FDA-Public Use
  Company Number: US-BIOGENIDEC-2012BI012354

PATIENT
  Age: 46 Year
  Sex: Female

DRUGS (4)
  1. TYSABRI [Suspect]
     Route: 042
     Dates: start: 20080418, end: 20090109
  2. TYSABRI [Suspect]
     Indication: MULTIPLE SCLEROSIS
     Route: 042
     Dates: start: 20070628, end: 20080104
  3. TYSABRI [Suspect]
     Route: 042
     Dates: start: 20090521, end: 20101118
  4. TYSABRI [Suspect]
     Route: 042
     Dates: start: 20110907

REACTIONS (3)
  - RASH MACULAR [None]
  - ERYTHEMA [None]
  - PRURITUS GENERALISED [None]
